FAERS Safety Report 11222525 (Version 1)
Quarter: 2015Q2

REPORT INFORMATION
  Report Type: Report from Study
  Country: DE (occurrence: DE)
  Receive Date: 20150626
  Receipt Date: 20150626
  Transmission Date: 20150821
  Serious: Yes (Hospitalization)
  Sender: FDA-Public Use
  Company Number: DE-TEVA-571977GER

PATIENT
  Age: 53 Year
  Sex: Female
  Weight: 82 kg

DRUGS (13)
  1. TOFACITINIB CITRATE TABLET [Suspect]
     Active Substance: TOFACITINIB CITRATE
     Indication: RHEUMATOID ARTHRITIS
     Dosage: 20 MILLIGRAM DAILY;
     Route: 048
     Dates: start: 20100929, end: 20120117
  2. MESALAZINE [Concomitant]
     Active Substance: MESALAMINE
     Indication: COLITIS
     Dosage: 1500 MILLIGRAM DAILY;
     Route: 048
     Dates: start: 20110914, end: 20120220
  3. SINUPAS [Concomitant]
     Indication: COUGH
  4. EPROSARTAN [Concomitant]
     Active Substance: EPROSARTAN
     Indication: HYPERTENSION
     Dosage: 600 MILLIGRAM DAILY;
     Route: 048
     Dates: start: 200905, end: 20120220
  5. METFORMIN [Suspect]
     Active Substance: METFORMIN HYDROCHLORIDE
     Indication: DIABETES MELLITUS
     Dosage: 850 MILLIGRAM DAILY;
     Route: 048
     Dates: start: 20070817
  6. CIPRAMIL [Suspect]
     Active Substance: CITALOPRAM HYDROBROMIDE
     Indication: DEPRESSION
     Dosage: 10 MILLIGRAM DAILY;
     Route: 048
     Dates: start: 2006
  7. CITALOPRAM [Concomitant]
     Active Substance: CITALOPRAM HYDROBROMIDE
     Dosage: 10 MILLIGRAM DAILY;
     Dates: start: 2006
  8. METHOTREXATE SODIUM. [Suspect]
     Active Substance: METHOTREXATE SODIUM
     Indication: RHEUMATOID ARTHRITIS
     Route: 048
     Dates: start: 20110923, end: 20120220
  9. PROTHIPENDYL [Suspect]
     Active Substance: PROTHIPENDYL
     Indication: DEPRESSION
     Dosage: 40 MILLIGRAM DAILY;
     Route: 048
     Dates: start: 2006, end: 20120220
  10. FOLIC ACID. [Concomitant]
     Active Substance: FOLIC ACID
     Indication: PROPHYLAXIS
     Route: 048
     Dates: start: 20071219, end: 20120328
  11. OMEPRAZOLE. [Concomitant]
     Active Substance: OMEPRAZOLE
     Indication: COLITIS
     Dosage: 20 MILLIGRAM DAILY;
     Route: 048
     Dates: start: 20101027
  12. ENALAPRIL [Concomitant]
     Active Substance: ENALAPRIL
     Indication: HYPERTENSION
     Dosage: 10 MILLIGRAM DAILY;
     Route: 048
     Dates: start: 1990, end: 20120220
  13. METOPROLOL [Concomitant]
     Active Substance: METOPROLOL
     Indication: HYPERTENSION
     Dosage: 100 MILLIGRAM DAILY;
     Route: 048
     Dates: start: 2005

REACTIONS (6)
  - Anaemia [None]
  - Vomiting [None]
  - Hepatic steatosis [None]
  - Colitis [Recovered/Resolved]
  - Gastrointestinal haemorrhage [None]
  - General physical health deterioration [None]

NARRATIVE: CASE EVENT DATE: 20120218
